FAERS Safety Report 5839716-9 (Version None)
Quarter: 2008Q3

REPORT INFORMATION
  Report Type: 
  Country: None (occurrence: None)
  Receive Date: 20080811
  Receipt Date: 20080806
  Transmission Date: 20090109
  Serious: Yes (Other)
  Sender: FDA-Public Use
  Company Number: US-BAYER-200830206NA

PATIENT
  Sex: Female

DRUGS (4)
  1. YAZ [Suspect]
     Indication: CONTRACEPTION
     Route: 048
     Dates: start: 20070901, end: 20080711
  2. HUMIRA [Concomitant]
     Indication: PSORIASIS
     Route: 030
     Dates: start: 20080101, end: 20080601
  3. ENBREL [Concomitant]
     Indication: PSORIASIS
     Route: 030
     Dates: start: 20070701, end: 20071101
  4. IBUPROFEN [Concomitant]
     Indication: DYSMENORRHOEA
     Route: 048
     Dates: start: 19990101

REACTIONS (2)
  - ABORTION SPONTANEOUS [None]
  - PREGNANCY ON ORAL CONTRACEPTIVE [None]
